FAERS Safety Report 23058498 (Version 3)
Quarter: 2023Q4

REPORT INFORMATION
  Report Type: Spontaneous
  Country: US (occurrence: US)
  Receive Date: 20231012
  Receipt Date: 20231222
  Transmission Date: 20240110
  Serious: No
  Sender: FDA-Public Use
  Company Number: US-EXELIXIS-CABO-23069071

PATIENT
  Age: 58 Year
  Sex: Male

DRUGS (6)
  1. NIVOLUMAB [Suspect]
     Active Substance: NIVOLUMAB
     Indication: Renal cell carcinoma
     Dates: start: 20230814
  2. CABOMETYX [Suspect]
     Active Substance: CABOZANTINIB S-MALATE
     Indication: Renal cell carcinoma
     Dates: start: 20230814, end: 20231005
  3. CABOMETYX [Suspect]
     Active Substance: CABOZANTINIB S-MALATE
  4. LOSARTAN [Concomitant]
     Active Substance: LOSARTAN
     Indication: Product used for unknown indication
  5. FINASTERIDE [Concomitant]
     Active Substance: FINASTERIDE
     Indication: Product used for unknown indication
  6. TAMSULOSIN [Concomitant]
     Active Substance: TAMSULOSIN
     Indication: Product used for unknown indication

REACTIONS (4)
  - Palmar-plantar erythrodysaesthesia syndrome [Recovering/Resolving]
  - Constipation [Recovered/Resolved]
  - Glossitis [Recovered/Resolved]
  - Dry mouth [Unknown]
